FAERS Safety Report 6422053-1 (Version None)
Quarter: 2009Q4

REPORT INFORMATION
  Report Type: 
  Country: None (occurrence: None)
  Receive Date: 20091030
  Receipt Date: 20091021
  Transmission Date: 20100525
  Serious: Yes (Other)
  Sender: FDA-Public Use
  Company Number: US-ROCHE-476703

PATIENT
  Sex: Female
  Weight: 118.4 kg

DRUGS (30)
  1. TOCILIZUMAB [Suspect]
     Indication: RHEUMATOID ARTHRITIS
     Dosage: DOSAGE FORM REPORTED AS INFUSION.
     Route: 042
     Dates: start: 20050819, end: 20061228
  2. TOCILIZUMAB [Suspect]
     Dosage: ESCAPE THERAPY; DOSE REPORTED AS 8 MG
     Route: 042
  3. FOLIC ACID [Suspect]
     Indication: RHEUMATOID ARTHRITIS
     Dosage: FREQUENCY: QD
     Route: 048
     Dates: start: 20050819, end: 20061228
  4. METHOTREXATE [Suspect]
     Indication: RHEUMATOID ARTHRITIS
     Route: 048
     Dates: start: 20050126
  5. TYLENOL [Concomitant]
     Indication: TENSION HEADACHE
     Dates: start: 20000101
  6. ASPIRIN [Concomitant]
     Indication: TENSION HEADACHE
     Dosage: FREQUENCY: PRN
     Route: 048
     Dates: start: 20000101, end: 20061228
  7. ADDERALL 10 [Concomitant]
     Route: 048
     Dates: start: 20060301, end: 20061228
  8. WELLBUTRIN [Concomitant]
     Indication: ANXIETY
     Dosage: FREQUENCY: QD
     Dates: start: 20050101
  9. ALTACE [Concomitant]
     Indication: HYPERTENSION
     Dosage: FREQUENCY: QD
     Route: 048
     Dates: start: 20040101
  10. NEXIUM [Concomitant]
     Dosage: FREQUENCY: QD
     Route: 048
     Dates: start: 20020101
  11. LESCOL [Concomitant]
     Dosage: FREQUENCY:QD
     Route: 048
     Dates: start: 20050201
  12. ABREVA [Concomitant]
     Dosage: FREQUENCY: PRN
     Dates: start: 20060719, end: 20060727
  13. OXYCODONE [Concomitant]
     Indication: RHEUMATOID ARTHRITIS
     Dates: start: 20050901
  14. CALCIUM [Concomitant]
     Dosage: FREQUENCY: QD
     Dates: start: 19900101
  15. METAMIZOL [Concomitant]
     Indication: CONSTIPATION
     Dosage: FREQUENCY: QD
     Dates: start: 20040801
  16. MILK OF MAGNESIA TAB [Concomitant]
     Indication: CONSTIPATION
     Dosage: UNIT REPORTED AS TEESPOON (TSP).
     Dates: start: 20040801
  17. MURINE EYE DROPS [Concomitant]
     Dates: start: 20030101
  18. MULTI-VITAMIN [Concomitant]
     Route: 048
     Dates: start: 19950101, end: 20061228
  19. TYLENOL (CAPLET) [Concomitant]
     Indication: RHEUMATOID ARTHRITIS
     Route: 048
     Dates: start: 20060915
  20. DEXTROL [Concomitant]
     Dosage: REPORTED AS DEXTROL LA.
     Route: 048
     Dates: start: 20061009, end: 20061228
  21. NASONEX [Concomitant]
     Dosage: TWO SQUIRTS EACH NOSTRIL.
     Route: 045
     Dates: start: 20061009
  22. LUNESTA [Concomitant]
     Indication: INSOMNIA
     Dosage: FREQUENCY: HS
     Dates: start: 20091009, end: 20091014
  23. LUNESTA [Concomitant]
     Dosage: FREQUENCY: HS
     Dates: start: 20061020
  24. FLU-STAT [Concomitant]
     Route: 042
     Dates: start: 20061116, end: 20061116
  25. METRONIDAZOLE [Concomitant]
     Indication: PROPHYLAXIS
     Dosage: FREQUENCY: QD
     Route: 048
     Dates: start: 20061211, end: 20061218
  26. NYQUIL [Concomitant]
     Indication: VIRAL UPPER RESPIRATORY TRACT INFECTION
     Dosage: FREQUENCY: PRN DOSE: 1 TSP
     Dates: start: 20060518, end: 20060523
  27. VICKS DAYQUIL SINUS PRESSURE + PAIN RELIEF W/ IBUPROFEN [Concomitant]
     Indication: VIRAL UPPER RESPIRATORY TRACT INFECTION
     Dosage: FREQUENCY: PRN DOSE: 1 TSP
     Dates: start: 20060518, end: 20060523
  28. TUSSIREX [Concomitant]
     Indication: VIRAL UPPER RESPIRATORY TRACT INFECTION
     Dosage: DRUG: TUSSIREX COUGH FREQUENCY: PRN DOSE: 1 TSP
     Dates: start: 20060523, end: 20060616
  29. KENALOG [Concomitant]
     Indication: ARTHRITIS
     Dosage: FREQUENCY: IX
     Dates: start: 20060914, end: 20060914
  30. XYLOCAINE [Concomitant]
     Indication: ARTHRITIS
     Dosage: FREQUENCY: IX
     Dates: start: 20060914, end: 20060914

REACTIONS (1)
  - ENDOMETRIAL CANCER METASTATIC [None]
